FAERS Safety Report 18377794 (Version 1)
Quarter: 2020Q4

REPORT INFORMATION
  Report Type: Spontaneous
  Country: CA (occurrence: CA)
  Receive Date: 20201013
  Receipt Date: 20201013
  Transmission Date: 20210114
  Serious: Yes (Hospitalization, Other)
  Sender: FDA-Public Use
  Company Number: CA-JNJFOC-20201009943

PATIENT
  Age: 53 Year
  Sex: Female

DRUGS (12)
  1. INFLIXIMAB, RECOMBINANT [Suspect]
     Active Substance: INFLIXIMAB
     Indication: CROHN^S DISEASE
     Route: 042
  2. SOLU-MEDROL [Concomitant]
     Active Substance: METHYLPREDNISOLONE SODIUM SUCCINATE
     Route: 042
  3. PURINETHOL [Suspect]
     Active Substance: MERCAPTOPURINE
     Indication: PRODUCT USED FOR UNKNOWN INDICATION
     Route: 065
  4. CALCIUM                            /00241701/ [Concomitant]
  5. HUMIRA [Suspect]
     Active Substance: ADALIMUMAB
     Indication: PRODUCT USED FOR UNKNOWN INDICATION
     Route: 058
  6. ACETAMINOPHEN. [Concomitant]
     Active Substance: ACETAMINOPHEN
  7. MINOCYCLINE HYDROCHLORIDE. [Concomitant]
     Active Substance: MINOCYCLINE HYDROCHLORIDE
  8. PANTOLOC                           /01263204/ [Concomitant]
     Active Substance: PANTOPRAZOLE SODIUM
  9. PREDNISONE. [Concomitant]
     Active Substance: PREDNISONE
  10. VITAMIN D NOS [Concomitant]
     Active Substance: VITAMIN D NOS
  11. FLAGYL [Suspect]
     Active Substance: METRONIDAZOLE\METRONIDAZOLE HYDROCHLORIDE
     Indication: PRODUCT USED FOR UNKNOWN INDICATION
     Route: 065
  12. AZATHIOPRINE. [Concomitant]
     Active Substance: AZATHIOPRINE
     Route: 048

REACTIONS (20)
  - Abdominal distension [Unknown]
  - Irritability [Unknown]
  - Mental disorder [Unknown]
  - Colitis [Unknown]
  - Perforation [Unknown]
  - Gastrointestinal fistula [Unknown]
  - C-reactive protein increased [Unknown]
  - Generalised anxiety disorder [Unknown]
  - Hidradenitis [Unknown]
  - Flatulence [Unknown]
  - Drug ineffective [Unknown]
  - Chronic obstructive pulmonary disease [Unknown]
  - Borderline personality disorder [Unknown]
  - Drug intolerance [Unknown]
  - Intestinal stenosis [Unknown]
  - Crohn^s disease [Unknown]
  - Gastritis erosive [Unknown]
  - Hypervigilance [Unknown]
  - Gastrointestinal sounds abnormal [Unknown]
  - Platelet count increased [Unknown]
